FAERS Safety Report 4557031-0 (Version None)
Quarter: 2005Q1

REPORT INFORMATION
  Report Type: 
  Country: None (occurrence: None)
  Receive Date: 20050118
  Receipt Date: 20050606
  Transmission Date: 20050727
  Serious: No
  Sender: FDA-Public Use
  Company Number: 2005UW00373

PATIENT
  Age: 82 Year
  Sex: Male

DRUGS (14)
  1. CRESTOR [Suspect]
     Dosage: 10 MG DAILY PO
     Route: 048
  2. NO MATCH [Concomitant]
  3. ASAPHEN [Concomitant]
  4. ECHINACEA [Concomitant]
  5. GAVISCON [Concomitant]
  6. GLUCOSAMINE [Concomitant]
  7. IMOVANE [Concomitant]
  8. LECITHIN [Concomitant]
  9. NORVASC [Concomitant]
  10. HYDRA-ZIDE [Concomitant]
  11. OMEGA [Concomitant]
  12. PLAVIX [Concomitant]
  13. VITAMIN C [Concomitant]
  14. VITAMIN E [Concomitant]

REACTIONS (9)
  - ASTHENIA [None]
  - CHROMATURIA [None]
  - COUGH [None]
  - DIZZINESS [None]
  - FALL [None]
  - HYPOTONIA [None]
  - INCREASED BRONCHIAL SECRETION [None]
  - INFECTION [None]
  - PYREXIA [None]
